FAERS Safety Report 7578123-8 (Version None)
Quarter: 2011Q2

REPORT INFORMATION
  Report Type: 
  Country: None (occurrence: None)
  Receive Date: 20110628
  Receipt Date: 20110609
  Transmission Date: 20111010
  Serious: Yes (Other)
  Sender: FDA-Public Use
  Company Number: A0751434A

PATIENT
  Age: 26 Year
  Sex: Female
  Weight: 143.2 kg

DRUGS (1)
  1. AVANDAMET [Suspect]
     Dosage: 1TAB TWICE PER DAY
     Route: 048

REACTIONS (5)
  - CARDIAC DISORDER [None]
  - OEDEMA [None]
  - WEIGHT INCREASED [None]
  - CHEST PAIN [None]
  - CARDIAC FAILURE CONGESTIVE [None]
